FAERS Safety Report 4420645-2 (Version None)
Quarter: 2004Q3

REPORT INFORMATION
  Report Type: 
  Country: None (occurrence: None)
  Receive Date: 20040809
  Receipt Date: 20040414
  Transmission Date: 20050211
  Serious: No
  Sender: FDA-Public Use
  Company Number: US-GLAXOSMITHKLINE-A0507180A

PATIENT
  Age: 54 Year
  Sex: Male

DRUGS (3)
  1. PAXIL [Suspect]
     Dosage: 10MG TWICE PER DAY
     Route: 048
     Dates: start: 20040201
  2. ZANTAC [Concomitant]
     Route: 065
  3. ALKA SELTZER [Concomitant]
     Route: 065

REACTIONS (4)
  - DRUG INEFFECTIVE [None]
  - DYSPEPSIA [None]
  - INSOMNIA [None]
  - WEIGHT INCREASED [None]
